FAERS Safety Report 8273734-9 (Version None)
Quarter: 2012Q2

REPORT INFORMATION
  Report Type: 
  Country: None (occurrence: None)
  Receive Date: 20120411
  Receipt Date: 20120405
  Transmission Date: 20120825
  Serious: Yes (Death, Hospitalization)
  Sender: FDA-Public Use
  Company Number: DE-SANOFI-AVENTIS-2012SA024109

PATIENT
  Age: 61 Year
  Sex: Male

DRUGS (4)
  1. ENOXAPARIN SODIUM [Suspect]
     Route: 065
     Dates: start: 20120208, end: 20120208
  2. VEMURAFENIB [Suspect]
     Route: 048
     Dates: start: 20120206, end: 20120209
  3. GABAPENTIN [Suspect]
     Dates: start: 20120207
  4. HYDROMORPHONE HCL [Concomitant]
     Dates: start: 20120207

REACTIONS (1)
  - THROMBOCYTOPENIA [None]
